FAERS Safety Report 4400136-5 (Version None)
Quarter: 2004Q3

REPORT INFORMATION
  Report Type: 
  Country: None (occurrence: None)
  Receive Date: 20040716
  Receipt Date: 20040702
  Transmission Date: 20050211
  Serious: Yes (Other)
  Sender: FDA-Public Use
  Company Number: 2004222088US

PATIENT
  Age: 64 Year
  Sex: Male

DRUGS (1)
  1. CELEBREX [Suspect]
     Dates: start: 19960101, end: 20031201

REACTIONS (2)
  - DYSPEPSIA [None]
  - HAEMORRHAGE [None]
